FAERS Safety Report 5603338-5 (Version None)
Quarter: 2008Q1

REPORT INFORMATION
  Report Type: 
  Country: None (occurrence: None)
  Receive Date: 20080122
  Receipt Date: 20080108
  Transmission Date: 20080703
  Serious: Yes (Hospitalization)
  Sender: FDA-Public Use
  Company Number: TRP_01016_2008

PATIENT
  Sex: Male

DRUGS (6)
  1. AMPHOCIL / AMPHOTERICIN B CHOLESTERYL SULFATE COMPLEX FOR INJECTION [Suspect]
     Indication: FUNGAL INFECTION
     Dosage: (DF INTRAVENOUS)
     Route: 042
     Dates: start: 20071211, end: 20071214
  2. SINERSUL [Concomitant]
  3. RENNIE [Concomitant]
  4. RAJAZOL GEL [Concomitant]
  5. RANITAL [Concomitant]
  6. NEUPOGEN [Concomitant]

REACTIONS (3)
  - GRAND MAL CONVULSION [None]
  - HYPERPYREXIA [None]
  - LOSS OF CONSCIOUSNESS [None]
